FAERS Safety Report 10193614 (Version 1)
Quarter: 2014Q2

REPORT INFORMATION
  Report Type: Spontaneous
  Country: US (occurrence: US)
  Receive Date: 20140524
  Receipt Date: 20140524
  Transmission Date: 20141212
  Serious: No
  Sender: FDA-Public Use
  Company Number: US-SA-2013SA125909

PATIENT
  Age: 56 Year
  Sex: Female
  Weight: 79.38 kg

DRUGS (5)
  1. LANTUS SOLOSTAR [Suspect]
     Indication: TYPE 2 DIABETES MELLITUS
     Dosage: FREQUENCY-NIGHTLY DOSE:20 UNIT(S)
     Route: 051
     Dates: start: 20131129, end: 20131129
  2. LANTUS SOLOSTAR [Suspect]
     Indication: BLOOD GLUCOSE ABNORMAL
     Dosage: FREQUENCY-NIGHTLY DOSE:20 UNIT(S)
     Route: 051
     Dates: start: 20131129, end: 20131129
  3. SOLOSTAR [Concomitant]
     Dates: start: 20131130, end: 20131201
  4. AMLODIPINE/BENAZEPRIL [Concomitant]
     Indication: HYPERTENSION
     Dosage: AMLODIPINE 5 MG AND BENAZEPRIL 20 MG SINCE 3 YEARS
  5. METFORMIN [Concomitant]

REACTIONS (10)
  - Flatulence [Recovered/Resolved]
  - Abdominal pain [Recovered/Resolved]
  - Gastrointestinal pain [Unknown]
  - Influenza like illness [Unknown]
  - Pain [Recovered/Resolved]
  - Chills [Recovered/Resolved]
  - Nausea [Recovered/Resolved]
  - Abdominal distension [Recovered/Resolved]
  - Discomfort [Recovered/Resolved]
  - Injection site pain [Recovered/Resolved]
